FAERS Safety Report 6727056-5 (Version None)
Quarter: 2010Q2

REPORT INFORMATION
  Report Type: 
  Country: None (occurrence: None)
  Receive Date: 20100517
  Receipt Date: 20100505
  Transmission Date: 20101027
  Serious: Yes (Life-Threatening)
  Sender: FDA-Public Use
  Company Number: DE-JNJFOC-20100502857

PATIENT
  Sex: Male

DRUGS (5)
  1. REOPRO [Suspect]
     Indication: DRUG USE FOR UNKNOWN INDICATION
     Route: 040
  2. REOPRO [Suspect]
     Route: 042
  3. HEPARIN [Concomitant]
     Indication: MYOCARDIAL INFARCTION
     Route: 042
  4. CLOPIDOGREL [Concomitant]
     Indication: MYOCARDIAL INFARCTION
     Route: 048
  5. ACETYLSALICYLIC ACID [Concomitant]
     Indication: MYOCARDIAL INFARCTION
     Route: 042

REACTIONS (1)
  - CARDIAC TAMPONADE [None]
